FAERS Safety Report 7353268-6 (Version None)
Quarter: 2011Q1

REPORT INFORMATION
  Report Type: 
  Country: None (occurrence: None)
  Receive Date: 20110315
  Receipt Date: 20110302
  Transmission Date: 20110831
  Serious: Yes (Other)
  Sender: FDA-Public Use
  Company Number: US-ACTELION-A-US2011-45851

PATIENT

DRUGS (2)
  1. TRACLEER [Suspect]
     Indication: PULMONARY ARTERIAL HYPERTENSION
     Dosage: UNK
     Route: 048
     Dates: start: 20080502
  2. REVATIO [Concomitant]

REACTIONS (6)
  - DIZZINESS [None]
  - CYSTITIS [None]
  - DYSPNOEA [None]
  - EXERCISE TOLERANCE DECREASED [None]
  - SEPSIS [None]
  - COUGH [None]
